FAERS Safety Report 22902927 (Version 3)
Quarter: 2023Q4

REPORT INFORMATION
  Report Type: Spontaneous
  Country: US (occurrence: US)
  Receive Date: 20230904
  Receipt Date: 20231228
  Transmission Date: 20240110
  Serious: Yes (Other)
  Sender: FDA-Public Use
  Company Number: US-ELI_LILLY_AND_COMPANY-US202308018405

PATIENT
  Age: 69 Year
  Sex: Male
  Weight: 101.3 kg

DRUGS (16)
  1. AMYVID [Suspect]
     Active Substance: FLORBETAPIR F-18
     Indication: Positron emission tomogram
     Dosage: 10 MCI, SINGLE
     Route: 042
     Dates: start: 20230712, end: 20230712
  2. GABAPENTIN [Concomitant]
     Active Substance: GABAPENTIN
     Indication: Neuropathy peripheral
     Dosage: 300 MG, TID
     Route: 048
     Dates: start: 2018
  3. DULOXETINE [Concomitant]
     Active Substance: DULOXETINE
     Indication: Neuropathy peripheral
     Dosage: 30 MG, DAILY
     Route: 048
     Dates: start: 202206
  4. ASPIRIN [Concomitant]
     Active Substance: ASPIRIN
     Indication: Cardiovascular disorder
     Dosage: 81 MG, DAILY
     Route: 048
     Dates: start: 202206
  5. ELIQUIS [Concomitant]
     Active Substance: APIXABAN
     Indication: Cardiovascular disorder
     Dosage: 5 MG, DAILY
     Route: 048
     Dates: start: 202206
  6. TRAMADOL [Concomitant]
     Active Substance: TRAMADOL\TRAMADOL HYDROCHLORIDE
     Indication: Osteoarthritis
     Dosage: 25 MG, TID
     Route: 048
     Dates: start: 202206
  7. TYLENOL [Concomitant]
     Active Substance: ACETAMINOPHEN
     Indication: Osteoarthritis
     Dosage: 200 MG, TID
     Route: 048
     Dates: start: 202206
  8. MEMANTINE [Concomitant]
     Active Substance: MEMANTINE
     Indication: Dementia Alzheimer^s type
     Dosage: 5 MG, TID
     Route: 048
     Dates: start: 202211
  9. DONEPEZIL [Concomitant]
     Active Substance: DONEPEZIL
     Indication: Dementia Alzheimer^s type
     Dosage: 10 MG, DAILY
     Route: 048
     Dates: start: 202211
  10. FLOMAX [Concomitant]
     Active Substance: TAMSULOSIN HYDROCHLORIDE
     Indication: Benign prostatic hyperplasia
     Dosage: 0.4 MG, DAILY
     Route: 048
     Dates: start: 2017
  11. ROSUVASTATIN [Concomitant]
     Active Substance: ROSUVASTATIN
     Indication: Hyperlipidaemia
     Dosage: 10 MG, DAILY
     Route: 048
     Dates: start: 202207
  12. MAGNESIUM [Concomitant]
     Active Substance: MAGNESIUM
     Indication: Magnesium deficiency
     Dosage: 200 MG, DAILY
     Route: 048
     Dates: start: 2018
  13. VITAMIN B2 [Concomitant]
     Active Substance: RIBOFLAVIN
     Indication: Vitamin B complex deficiency
     Dosage: 250 MG, DAILY
     Route: 048
     Dates: start: 2018
  14. VITAMIN D NOS [Concomitant]
     Active Substance: VITAMIN D NOS
     Indication: Vitamin D deficiency
     Dosage: 10000 INTERNATIONAL UNIT, DAILY
     Route: 048
     Dates: start: 2018
  15. ARGININE [Concomitant]
     Active Substance: ARGININE
     Indication: Prophylaxis
     Dosage: 500 MG, DAILY
     Route: 048
     Dates: start: 2018
  16. TOTAL RESTORE [Concomitant]
     Indication: Prophylaxis
     Dosage: 1 DOSAGE FORM, DAILY
     Route: 048
     Dates: start: 202303

REACTIONS (1)
  - Drug hypersensitivity [Recovered/Resolved]

NARRATIVE: CASE EVENT DATE: 20230829
